FAERS Safety Report 5272214-2 (Version None)
Quarter: 2007Q1

REPORT INFORMATION
  Report Type: 
  Country: None (occurrence: None)
  Receive Date: 20070322
  Receipt Date: 20061206
  Transmission Date: 20070707
  Serious: No
  Sender: FDA-Public Use
  Company Number: US-GLAXOSMITHKLINE-A0630639A

PATIENT
  Age: 49 Year
  Sex: Male

DRUGS (7)
  1. AVANDARYL [Suspect]
     Dosage: 1TAB PER DAY
     Route: 048
     Dates: start: 20061204
  2. ATENOLOL [Concomitant]
  3. RANITIDINE [Concomitant]
  4. POTASSIUM ACETATE [Concomitant]
  5. ASPIRIN [Concomitant]
  6. MULTI-VITAMIN [Concomitant]
  7. LIPITOR [Concomitant]

REACTIONS (1)
  - DRUG INEFFECTIVE [None]
